FAERS Safety Report 9506686 (Version 1)
Quarter: 2013Q1

REPORT INFORMATION
  Report Type: Spontaneous
  Country: US (occurrence: None)
  Receive Date: 20130305
  Receipt Date: 20130305
  Transmission Date: 20140127
  Serious: Yes (Other)
  Sender: FDA-Public Use
  Company Number: 163-21880-12111281

PATIENT
  Age: 60 Year
  Sex: Male
  Weight: 104.33 kg

DRUGS (11)
  1. REVLIMID [Suspect]
     Indication: PLASMA CELL MYELOMA
     Dosage: 15 MG, 1 IN 1 D, PO
     Route: 048
     Dates: start: 20111010
  2. AMLODIPINE BESYLATE (AMLODIPINE BESILATE) (UNKNOWN) [Concomitant]
  3. ARIXTRA (FOUNDAPARINUX SODIUM) (UNKNOWN) [Concomitant]
  4. BACTRIM (BACTRIM) (UNKNOWN) [Concomitant]
  5. BENEFIBER (TABLETS) [Concomitant]
  6. CENTRUM SILVER (CENTRUM SILVER) (TABLETES)? [Concomitant]
  7. COLACE (DOCUSATE SODIUM) (CAPSULES) [Concomitant]
  8. LATANOPROST (LATANOPROST) (UNKNOWN) [Concomitant]
  9. LOSARTAN POTASSIUM (LOSARTAN POTASSIUM) (UNKNOWN) [Concomitant]
  10. MIRALAX (MACROGOL) (POWDER) [Concomitant]
  11. MORPHINE SULFATE (MORPHINE SULFATE) (UNKNOWN) [Concomitant]

REACTIONS (1)
  - Pruritus [None]
